FAERS Safety Report 26014377 (Version 1)
Quarter: 2025Q4

REPORT INFORMATION
  Report Type: Spontaneous
  Country: US (occurrence: US)
  Receive Date: 20251108
  Receipt Date: 20251108
  Transmission Date: 20260118
  Serious: No
  Sender: AMGEN
  Company Number: US-AMGEN-USASP2025217978

PATIENT
  Sex: Female

DRUGS (1)
  1. REPATHA [Suspect]
     Active Substance: EVOLOCUMAB
     Indication: Product used for unknown indication
     Dosage: UNK
     Route: 065

REACTIONS (3)
  - Muscle spasms [Not Recovered/Not Resolved]
  - Back pain [Not Recovered/Not Resolved]
  - Muscle atrophy [Not Recovered/Not Resolved]
